FAERS Safety Report 4555392-X (Version None)
Quarter: 2005Q1

REPORT INFORMATION
  Report Type: 
  Country: None (occurrence: None)
  Receive Date: 20050118
  Receipt Date: 20050118
  Transmission Date: 20050727
  Serious: Yes (Other)
  Sender: FDA-Public Use
  Company Number: None

PATIENT
  Age: 44 Year
  Sex: Male
  Weight: 99.7913 kg

DRUGS (4)
  1. LIPITOR [Suspect]
     Dosage: 10 MG ORAL
     Route: 048
     Dates: start: 19970101, end: 19990301
  2. ZOCOR [Suspect]
     Dosage: 20 MG ORAL
     Route: 048
     Dates: start: 19990301, end: 20000301
  3. ATACAND [Concomitant]
  4. HYDROCHLOROTHIAZIDE [Concomitant]

REACTIONS (2)
  - DIFFICULTY IN WALKING [None]
  - NEUROPATHY PERIPHERAL [None]
